FAERS Safety Report 12637624 (Version 1)
Quarter: 2016Q3

REPORT INFORMATION
  Report Type: Spontaneous
  Country: US (occurrence: US)
  Receive Date: 20160809
  Receipt Date: 20160809
  Transmission Date: 20161109
  Serious: No
  Sender: FDA-Public Use
  Company Number: US-ABBVIE-16P-163-1611611-00

PATIENT
  Age: 21 Year
  Sex: Male
  Weight: 79.83 kg

DRUGS (7)
  1. GEODON [Suspect]
     Active Substance: ZIPRASIDONE HYDROCHLORIDE\ZIPRASIDONE MESYLATE
     Indication: SCHIZOAFFECTIVE DISORDER
     Route: 048
     Dates: start: 2016
  2. DEPAKOTE [Suspect]
     Active Substance: DIVALPROEX SODIUM
     Indication: PRODUCT USED FOR UNKNOWN INDICATION
     Dosage: THE SMALLEST OR LOW DOSE: THOUGHT IT WAS 75MG.
     Route: 065
  3. GEODON [Suspect]
     Active Substance: ZIPRASIDONE HYDROCHLORIDE\ZIPRASIDONE MESYLATE
     Dosage: INCREASED
     Route: 048
     Dates: start: 2016
  4. GEODON [Suspect]
     Active Substance: ZIPRASIDONE HYDROCHLORIDE\ZIPRASIDONE MESYLATE
     Dosage: LOWERED THE DOSE
     Route: 048
     Dates: start: 2016
  5. SEROQUEL [Suspect]
     Active Substance: QUETIAPINE FUMARATE
     Indication: PRODUCT USED FOR UNKNOWN INDICATION
     Route: 065
  6. SEROQUEL [Suspect]
     Active Substance: QUETIAPINE FUMARATE
     Route: 065
  7. SEROQUEL [Suspect]
     Active Substance: QUETIAPINE FUMARATE
     Dosage: DECREASED THE DOSE
     Route: 065
     Dates: end: 201601

REACTIONS (7)
  - Restless legs syndrome [Unknown]
  - Anxiety [Unknown]
  - Akathisia [Unknown]
  - Drug ineffective [Unknown]
  - Aggression [Unknown]
  - Aggression [Unknown]
  - Mania [Unknown]

NARRATIVE: CASE EVENT DATE: 2016
